FAERS Safety Report 25961271 (Version 2)
Quarter: 2025Q4

REPORT INFORMATION
  Report Type: Report from Study
  Country: JP (occurrence: JP)
  Receive Date: 20251027
  Receipt Date: 20251030
  Transmission Date: 20260118
  Serious: Yes (Life-Threatening, Hospitalization)
  Sender: ALEXION PHARMACEUTICALS
  Company Number: JP-ASTRAZENECA-202506JPN027637JP

PATIENT
  Age: 69 Year
  Sex: Male
  Weight: 55 kg

DRUGS (3)
  1. DURVALUMAB [Suspect]
     Active Substance: DURVALUMAB
     Indication: Bile duct cancer
     Dosage: 1500 MILLIGRAM, Q3W
     Dates: start: 20240823
  2. GEMCITABINE [Concomitant]
     Active Substance: GEMCITABINE
     Dosage: 1000 MILLIGRAM/SQ. METER
     Route: 065
  3. CISPLATIN [Concomitant]
     Active Substance: CISPLATIN
     Dosage: 25 MILLIGRAM/SQ. METER
     Route: 065

REACTIONS (3)
  - Renal impairment [Not Recovered/Not Resolved]
  - Bacteraemia [Recovering/Resolving]
  - Infected neoplasm [Unknown]

NARRATIVE: CASE EVENT DATE: 20240831
